FAERS Safety Report 23219709 (Version 1)
Quarter: 2023Q4

REPORT INFORMATION
  Report Type: Spontaneous
  Country: US (occurrence: US)
  Receive Date: 20231122
  Receipt Date: 20231122
  Transmission Date: 20240109
  Serious: No
  Sender: FDA-Public Use
  Company Number: US-PFIZER INC-202300373317

PATIENT
  Age: 89 Year
  Sex: Female

DRUGS (1)
  1. LEVOTHYROXINE SODIUM [Suspect]
     Active Substance: LEVOTHYROXINE SODIUM
     Indication: Thyroid disorder
     Dosage: UNK

REACTIONS (6)
  - Drug hypersensitivity [Unknown]
  - Urticaria [Unknown]
  - Skin burning sensation [Unknown]
  - Hot flush [Unknown]
  - Insomnia [Unknown]
  - Thinking abnormal [Unknown]
